FAERS Safety Report 8065122-5 (Version None)
Quarter: 2012Q1

REPORT INFORMATION
  Report Type: 
  Country: None (occurrence: None)
  Receive Date: 20120117
  Receipt Date: 20120112
  Transmission Date: 20120608
  Serious: Yes (Other)
  Sender: FDA-Public Use
  Company Number: IMP_05711_2012

PATIENT
  Age: 25 Year
  Sex: Male

DRUGS (2)
  1. ALPRAZOLAM [Suspect]
     Indication: PRODUCT USED FOR UNKNOWN INDICATION
     Dosage: (30 MG 1X)
  2. BACLOFEN [Suspect]
     Indication: PRODUCT USED FOR UNKNOWN INDICATION
     Dosage: (720 MG 1X)

REACTIONS (8)
  - COMA [None]
  - BRAIN STEM SYNDROME [None]
  - SUICIDE ATTEMPT [None]
  - HYPOTENSION [None]
  - HYPOTHERMIA [None]
  - ATRIOVENTRICULAR BLOCK SECOND DEGREE [None]
  - INTENTIONAL OVERDOSE [None]
  - AREFLEXIA [None]
